FAERS Safety Report 23412498 (Version 2)
Quarter: 2024Q2

REPORT INFORMATION
  Report Type: Spontaneous
  Country: US (occurrence: US)
  Receive Date: 20240117
  Receipt Date: 20240502
  Transmission Date: 20240716
  Serious: Yes (Other)
  Sender: FDA-Public Use
  Company Number: US-NOVOPROD-1097013

PATIENT
  Sex: Female

DRUGS (1)
  1. OZEMPIC [Suspect]
     Active Substance: SEMAGLUTIDE
     Indication: Glucose tolerance impaired
     Dosage: 0.25
     Route: 058
     Dates: start: 20230619, end: 20230712

REACTIONS (4)
  - Paranoid personality disorder [Unknown]
  - Psychotic disorder [Unknown]
  - Blood glucose increased [Unknown]
  - Off label use [Unknown]
